FAERS Safety Report 4335557-2 (Version None)
Quarter: 2004Q2

REPORT INFORMATION
  Report Type: 
  Country: None (occurrence: None)
  Receive Date: 20040406
  Receipt Date: 20040323
  Transmission Date: 20050107
  Serious: No
  Sender: FDA-Public Use
  Company Number: 04H-163-0255728-00

PATIENT
  Age: 47 Year
  Sex: Female

DRUGS (1)
  1. DEMEROL [Suspect]
     Indication: DRUG USE FOR UNKNOWN INDICATION
     Dosage: NOT REPORTED, NOT REPORTED,
     Dates: start: 19960201

REACTIONS (10)
  - ANXIETY [None]
  - DEPRESSION [None]
  - DIFFICULTY IN WALKING [None]
  - DYSPNOEA [None]
  - FEAR [None]
  - FEELING ABNORMAL [None]
  - MENTAL DISORDER [None]
  - MONOPLEGIA [None]
  - SPEECH DISORDER [None]
  - TREMOR [None]
